FAERS Safety Report 18501378 (Version 1)
Quarter: 2020Q4

REPORT INFORMATION
  Report Type: Spontaneous
  Country: RO (occurrence: RO)
  Receive Date: 20201113
  Receipt Date: 20201113
  Transmission Date: 20210114
  Serious: Yes (Death, Other)
  Sender: FDA-Public Use
  Company Number: RO-ROCHE-2712780

PATIENT
  Age: 77 Year
  Sex: Male

DRUGS (2)
  1. BENDAMUSTINE [Suspect]
     Active Substance: BENDAMUSTINE
     Indication: PRODUCT USED FOR UNKNOWN INDICATION
     Dosage: ONE ADMINISTRATION
     Route: 065
     Dates: start: 20200917
  2. GAZYVARO [Suspect]
     Active Substance: OBINUTUZUMAB
     Indication: B-CELL LYMPHOMA REFRACTORY
     Dosage: ONLY ONE ADMINISTRATION
     Route: 065
     Dates: start: 20200917

REACTIONS (3)
  - Neoplasm progression [Unknown]
  - Pancytopenia [Unknown]
  - Death [Fatal]
